FAERS Safety Report 7233565 (Version 9)
Quarter: 2013Q3

REPORT INFORMATION
  Report Type: Spontaneous
  Country: US (occurrence: US)
  Receive Date: 20091230
  Receipt Date: 20130715
  Transmission Date: 20140515
  Serious: Yes (Hospitalization)
  Sender: FDA-Public Use
  Company Number: US-BIOGENIDEC-2009BI041643

PATIENT
  Age: 52 Year
  Sex: Female

DRUGS (12)
  1. TYSABRI [Suspect]
     Indication: MULTIPLE SCLEROSIS
     Route: 042
     Dates: start: 20080908, end: 20091116
  2. TYSABRI [Suspect]
     Indication: MULTIPLE SCLEROSIS
     Route: 042
     Dates: start: 20100810, end: 20130418
  3. LEXAPRO [Concomitant]
  4. SYNTHROID [Concomitant]
  5. MULTIVITAMIN [Concomitant]
  6. VITAMIN C [Concomitant]
  7. VITAMIN D + CALCIUM [Concomitant]
  8. VITAMIN B COMPLEX [Concomitant]
  9. FISH OIL [Concomitant]
  10. COUMADIN [Concomitant]
  11. IRON SULFATE [Concomitant]
  12. POTASSIUM [Concomitant]

REACTIONS (2)
  - Intraductal proliferative breast lesion [Recovered/Resolved]
  - Ovarian cancer stage III [Recovered/Resolved]
